FAERS Safety Report 4797281-1 (Version None)
Quarter: 2005Q4

REPORT INFORMATION
  Report Type: 
  Country: None (occurrence: None)
  Receive Date: 20051013
  Receipt Date: 20041203
  Transmission Date: 20060501
  Serious: Yes (Other)
  Sender: FDA-Public Use
  Company Number: GB-GLAXOSMITHKLINE-B0360174A

PATIENT
  Sex: Female

DRUGS (1)
  1. PAROXETINE HYDROCHLORIDE [Suspect]
     Indication: TEARFULNESS
     Route: 065
     Dates: start: 20010518, end: 20050701

REACTIONS (10)
  - ALOPECIA [None]
  - ANORGASMIA [None]
  - ANXIETY [None]
  - CONFUSIONAL STATE [None]
  - DRUG WITHDRAWAL SYNDROME [None]
  - HALLUCINATION [None]
  - INSOMNIA [None]
  - LIBIDO DECREASED [None]
  - NAUSEA [None]
  - WEIGHT INCREASED [None]
